FAERS Safety Report 5551635-4 (Version None)
Quarter: 2007Q4

REPORT INFORMATION
  Report Type: 
  Country: None (occurrence: None)
  Receive Date: 20071212
  Receipt Date: 20071130
  Transmission Date: 20080405
  Serious: Yes (Other)
  Sender: FDA-Public Use
  Company Number: US-PFIZER INC-2007101566

PATIENT
  Sex: Female
  Weight: 90.909 kg

DRUGS (9)
  1. LYRICA [Suspect]
     Indication: PAIN IN EXTREMITY
     Route: 048
  2. LYRICA [Suspect]
  3. TENORMIN [Concomitant]
  4. NEXIUM [Concomitant]
  5. ESTRADIOL [Concomitant]
  6. MONTELUKAST SODIUM [Concomitant]
  7. MOTRIN [Concomitant]
  8. LORTAB [Concomitant]
  9. PERCOCET [Concomitant]

REACTIONS (3)
  - EAR INFECTION [None]
  - VERTIGO [None]
  - WEIGHT INCREASED [None]
